FAERS Safety Report 10395281 (Version 1)
Quarter: 2014Q1

REPORT INFORMATION
  Report Type: Spontaneous
  Country: US (occurrence: None)
  Receive Date: 20130606
  Receipt Date: 20130606
  Transmission Date: 20141002
  Serious: No
  Sender: FDA-Public Use
  Company Number: 2012PROUSA01032

PATIENT
  Age: 73 Year
  Sex: Male
  Weight: 109.23 kg

DRUGS (1)
  1. PROVENGE (SIPULEUCEL-T) SUSPENSION, 250ML [Suspect]
     Indication: PROSTATE CANCER METASTATIC
     Route: 042
     Dates: start: 20120119, end: 20120119

REACTIONS (2)
  - Infusion site extravasation [None]
  - Infusion site swelling [None]
